FAERS Safety Report 9503133 (Version 1)
Quarter: 2013Q1

REPORT INFORMATION
  Report Type: Spontaneous
  Country: US (occurrence: None)
  Receive Date: 20130107
  Receipt Date: 20130107
  Transmission Date: 20140127
  Serious: No
  Sender: FDA-Public Use
  Company Number: PHEH2012US019833

PATIENT
  Age: 31 Year
  Sex: Female

DRUGS (1)
  1. GILENYA(FINGOLIMOD) [Suspect]

REACTIONS (3)
  - Depression [None]
  - Sleep disorder [None]
  - Abdominal pain upper [None]
